FAERS Safety Report 8608284-0 (Version None)
Quarter: 2012Q3

REPORT INFORMATION
  Report Type: 
  Country: None (occurrence: None)
  Receive Date: 20120821
  Receipt Date: 20120810
  Transmission Date: 20120928
  Serious: Yes (Other)
  Sender: FDA-Public Use
  Company Number: US-SANOFI-AVENTIS-2012SA058409

PATIENT
  Age: 70 Year
  Sex: Female

DRUGS (1)
  1. FEXOFENADINE HCL [Suspect]
     Indication: HEADACHE
     Dosage: SHE IS SWITCHING BETWEEN 180MG DAILY, TWICE A DAY, AND 60MG DAILY
     Route: 048
     Dates: start: 20120501

REACTIONS (8)
  - ORAL PAIN [None]
  - OPEN ANGLE GLAUCOMA [None]
  - DIZZINESS [None]
  - TOOTHACHE [None]
  - NECK PAIN [None]
  - ARTHRITIS [None]
  - BACK PAIN [None]
  - POOR QUALITY SLEEP [None]
